FAERS Safety Report 7658860-7 (Version None)
Quarter: 2011Q3

REPORT INFORMATION
  Report Type: 
  Country: None (occurrence: None)
  Receive Date: 20110802
  Receipt Date: 20110718
  Transmission Date: 20111222
  Serious: Yes (Disabling, Other)
  Sender: FDA-Public Use
  Company Number: AUR-APL-2011-02998

PATIENT
  Age: 82 Year
  Sex: Female
  Weight: 68.03 kg

DRUGS (7)
  1. CRESTOR [Concomitant]
  2. PANTOPRAZOLE [Suspect]
     Indication: PRODUCT USED FOR UNKNOWN INDICATION
  3. ACETAMINOPHEN [Concomitant]
  4. EFFEXOR XR [Suspect]
     Indication: NERVOUSNESS
     Dosage: 75 MG, 1 D) ORAL
     Route: 048
  5. EFFEXOR XR [Suspect]
     Indication: DEPRESSION
     Dosage: 75 MG, 1 D) ORAL
     Route: 048
  6. LISINOPRIL AND HYDROCHLOROTHIAZIDE [Suspect]
     Indication: BLOOD PRESSURE ABNORMAL
     Dosage: 20/12.5 MG (1 D)
  7. METOPROLOL TARTRATE [Concomitant]

REACTIONS (6)
  - OEDEMA PERIPHERAL [None]
  - ABASIA [None]
  - DRUG INTERACTION [None]
  - GOUT [None]
  - PRODUCT SUBSTITUTION ISSUE [None]
  - ARTHROPATHY [None]
